FAERS Safety Report 9204739 (Version 1)
Quarter: 2013Q2

REPORT INFORMATION
  Report Type: Spontaneous
  Country: US (occurrence: US)
  Receive Date: 20130402
  Receipt Date: 20130402
  Transmission Date: 20140414
  Serious: Yes (Hospitalization)
  Sender: FDA-Public Use
  Company Number: US-GLAXOSMITHKLINE-A0815173A

PATIENT
  Age: 47 Year
  Sex: Female

DRUGS (5)
  1. AVANDIA [Suspect]
     Indication: DIABETES MELLITUS
     Dosage: 4MG TWICE PER DAY
     Route: 048
     Dates: start: 20061207
  2. SIMVASTATIN [Concomitant]
  3. METFORMIN [Concomitant]
  4. GLYBURIDE [Concomitant]
  5. PLAVIX [Concomitant]

REACTIONS (2)
  - Myocardial infarction [Recovering/Resolving]
  - Cardiac failure congestive [Unknown]
